FAERS Safety Report 25962677 (Version 1)
Quarter: 2025Q4

REPORT INFORMATION
  Report Type: Spontaneous
  Country: US (occurrence: None)
  Receive Date: 20251024
  Receipt Date: 20251024
  Transmission Date: 20260118
  Serious: Yes (Death, Hospitalization)
  Sender: FDA-CTU
  Company Number: None

PATIENT
  Age: 81 Year
  Sex: Male

DRUGS (1)
  1. PIRFENIDONE [Suspect]
     Active Substance: PIRFENIDONE
     Indication: Pulmonary fibrosis
     Dosage: OTHER FREQUENCY : THREE;?
     Route: 048
     Dates: start: 20210805, end: 20250826

REACTIONS (6)
  - Adenosquamous cell lung cancer stage III [None]
  - Respiratory failure [None]
  - Pneumonia [None]
  - Weight decreased [None]
  - Dysphagia [None]
  - Radiation oesophagitis [None]

NARRATIVE: CASE EVENT DATE: 20250901
